FAERS Safety Report 20125155 (Version 2)
Quarter: 2021Q4

REPORT INFORMATION
  Report Type: Spontaneous
  Country: GB (occurrence: GB)
  Receive Date: 20211129
  Receipt Date: 20211220
  Transmission Date: 20220303
  Serious: Yes (Hospitalization)
  Sender: FDA-Public Use
  Company Number: GB-MYLANLABS-2021M1084173

PATIENT
  Sex: Male

DRUGS (1)
  1. CLOZARIL [Suspect]
     Active Substance: CLOZAPINE
     Indication: Schizophrenia
     Dosage: 200 MILLIGRAM
     Route: 048
     Dates: start: 20040705, end: 20211110

REACTIONS (5)
  - Renal impairment [Unknown]
  - Rhabdomyolysis [Unknown]
  - Fall [Unknown]
  - Delirium [Unknown]
  - Acute kidney injury [Unknown]
